FAERS Safety Report 24433785 (Version 1)
Quarter: 2024Q4

REPORT INFORMATION
  Report Type: Spontaneous
  Country: US (occurrence: US)
  Receive Date: 20241014
  Receipt Date: 20241014
  Transmission Date: 20250115
  Serious: Yes (Death)
  Sender: ANI
  Company Number: US-ANIPHARMA-2024-US-054339

PATIENT
  Age: 80 Year
  Sex: Female
  Weight: 102.51 kg

DRUGS (21)
  1. CORTICOTROPIN [Suspect]
     Active Substance: CORTICOTROPIN
     Indication: Multiple sclerosis
     Dosage: INJECT 80 UNITS (1 ML) UNDER THE SKIN 2 TIMES A WEEK FOR 4 WEEKS **VIAL EXPIRES 28 DAYS AFTER 1ST US
     Route: 058
  2. CARTIA XT [Concomitant]
     Active Substance: DILTIAZEM HYDROCHLORIDE
  3. ACETAMINOPHEN\HYDROCODONE [Concomitant]
     Active Substance: ACETAMINOPHEN\HYDROCODONE
  4. DESVENLAFAXINE [Concomitant]
     Active Substance: DESVENLAFAXINE
  5. OZEMPIC [Concomitant]
     Active Substance: SEMAGLUTIDE
  6. CLONIDINE HYDROCHLORIDE [Concomitant]
     Active Substance: CLONIDINE HYDROCHLORIDE
  7. LASIX [Concomitant]
     Active Substance: FUROSEMIDE
  8. PROTONIX [Concomitant]
     Active Substance: PANTOPRAZOLE SODIUM
  9. CARAFATE [Concomitant]
     Active Substance: SUCRALFATE
  10. ELIQUIS [Concomitant]
     Active Substance: APIXABAN
  11. ZYRTEC-D [Concomitant]
     Active Substance: CETIRIZINE HYDROCHLORIDE\PSEUDOEPHEDRINE HYDROCHLORIDE
  12. STIOLTO RESPIMAT [Concomitant]
     Active Substance: OLODATEROL HYDROCHLORIDE\TIOTROPIUM BROMIDE MONOHYDRATE
  13. KEPPRA [Concomitant]
     Active Substance: LEVETIRACETAM
  14. GABAPENTIN [Concomitant]
     Active Substance: GABAPENTIN
  15. CARVEDILOL [Concomitant]
     Active Substance: CARVEDILOL
  16. OMEPRAZOLE [Concomitant]
     Active Substance: OMEPRAZOLE
  17. LEVOTHYROXINE SODIUM [Concomitant]
     Active Substance: LEVOTHYROXINE SODIUM
  18. SINGULAIR [Concomitant]
     Active Substance: MONTELUKAST SODIUM
  19. ATORVASTATIN CALCIUM [Concomitant]
     Active Substance: ATORVASTATIN CALCIUM
  20. PRAMIPEXOLE DIHYDROCHLORIDE [Concomitant]
     Active Substance: PRAMIPEXOLE DIHYDROCHLORIDE
  21. LINZESS [Concomitant]
     Active Substance: LINACLOTIDE

REACTIONS (2)
  - Death [Fatal]
  - Contraindicated product administered [Recovered/Resolved]

NARRATIVE: CASE EVENT DATE: 20241001
